FAERS Safety Report 7222245-8 (Version None)
Quarter: 2011Q1

REPORT INFORMATION
  Report Type: 
  Country: None (occurrence: None)
  Receive Date: 20110112
  Receipt Date: 20101125
  Transmission Date: 20110831
  Serious: Yes (Death, Hospitalization)
  Sender: FDA-Public Use
  Company Number: JP-BAYER-200915275BYL

PATIENT
  Sex: Male
  Weight: 59 kg

DRUGS (14)
  1. NEXAVAR [Suspect]
     Indication: HEPATIC NEOPLASM MALIGNANT
     Route: 048
     Dates: start: 20090917, end: 20090930
  2. NEXAVAR [Suspect]
     Dosage: 400 MG, QD
     Route: 048
     Dates: start: 20091006, end: 20091114
  3. VITAMEDIN [Concomitant]
     Indication: VITAMIN SUPPLEMENTATION
     Dosage: SINCE BEFORE NEXAVAR ADMINISTRATION
     Route: 048
  4. GLAKAY [Concomitant]
     Dosage: SINCE BEFORE NEXAVAR ADMINISTRATION
     Route: 048
  5. ALDACTONE [Concomitant]
     Dosage: SINCE BEFORE NEXAVAR ADMINISTRATION
     Route: 048
  6. UREPEARL [Concomitant]
     Indication: PROPHYLAXIS
     Dosage: SINCE BEFORE NEXAVAR ADMINISTRATION
     Route: 061
  7. PROMAC [POLAPREZINC] [Concomitant]
     Indication: GASTRITIS PROPHYLAXIS
     Dosage: SINCE BEFORE NEXAVAR ADMINISTRATION
     Route: 048
  8. GASTER D [Concomitant]
     Indication: GASTRITIS PROPHYLAXIS
     Dosage: SINCE BEFORE NEXAVAR ADMINISTRATION
     Route: 048
  9. URSO 250 [Concomitant]
     Dosage: SINCE BEFORE NEXAVAR ADMINISTRATION
     Route: 048
  10. GOSHAJINKIGAN [Concomitant]
     Indication: FEELING COLD
     Dosage: SINCE BEFORE NEXAVAR ADMINISTRATION
     Route: 048
  11. INDERAL [Concomitant]
     Indication: PORTAL VEIN PRESSURE INCREASED
     Dosage: SINCE BEFORE NEXAVAR ADMINISTRATION
     Route: 048
  12. AMINOLEBAN EN [Concomitant]
     Dosage: SINCE BEFORE NEXAVAR ADMINISTRATION
     Route: 048
  13. LASIX [Concomitant]
     Dosage: SINCE BEFORE NEXAVAR ADMINISTRATION
     Route: 048
  14. NEXAVAR [Suspect]
     Dosage: 600 MG, QD
     Route: 048
     Dates: start: 20091001, end: 20091005

REACTIONS (6)
  - HEPATIC FUNCTION ABNORMAL [None]
  - BLOOD AMYLASE INCREASED [None]
  - ASCITES [None]
  - DYSPHONIA [None]
  - HYPERAMMONAEMIA [None]
  - OESOPHAGEAL VARICES HAEMORRHAGE [None]
